FAERS Safety Report 4850013-0 (Version None)
Quarter: 2005Q4

REPORT INFORMATION
  Report Type: 
  Country: None (occurrence: None)
  Receive Date: 20051123
  Receipt Date: 20041213
  Transmission Date: 20060501
  Serious: Yes (Hospitalization, Other)
  Sender: FDA-Public Use
  Company Number: 2004097188

PATIENT
  Sex: Female

DRUGS (5)
  1. LIPITOR [Suspect]
     Indication: HYPERCHOLESTEROLAEMIA
     Dosage: 10 MG (10 MG, DAILY), ORAL
     Route: 048
     Dates: start: 20020501
  2. ROSIGLITAZONE MALEATE [Concomitant]
  3. GLIPIZIDE [Concomitant]
  4. CODICLEAR (GUAIFENESIN, HYDROCODONE BITARTRATE) [Concomitant]
  5. CLAVULIN (AMOXICILLIN TRIHYDRATE, CLAVULANATE POTASSIUM) [Concomitant]

REACTIONS (2)
  - RHABDOMYOLYSIS [None]
  - SINUSITIS [None]
